FAERS Safety Report 8514515-8 (Version None)
Quarter: 2012Q3

REPORT INFORMATION
  Report Type: 
  Country: None (occurrence: None)
  Receive Date: 20120717
  Receipt Date: 20120706
  Transmission Date: 20120928
  Serious: Yes (Other)
  Sender: FDA-Public Use
  Company Number: CA-ELI_LILLY_AND_COMPANY-CA201011002694

PATIENT
  Sex: Female
  Weight: 58.6 kg

DRUGS (5)
  1. NECITUMUMAB (11F8) (LY3012211) [Suspect]
     Indication: NON-SMALL CELL LUNG CANCER
     Dosage: 400 MG, OTHER
     Route: 042
     Dates: start: 20100620, end: 20100831
  2. ATIVAN [Concomitant]
     Dosage: UNK, EACH EVENING
  3. CISPLATIN [Suspect]
     Indication: NON-SMALL CELL LUNG CANCER
     Dosage: 59.28 MG, OTHER
     Route: 042
     Dates: start: 20100629, end: 20100831
  4. PEMETREXED [Suspect]
     Indication: NON-SMALL CELL LUNG CANCER
     Dosage: 390 MG, OTHER
     Route: 042
     Dates: start: 20100629, end: 20100831
  5. SENOKOT [Concomitant]
     Dosage: UNK, DAILY (1/D)

REACTIONS (1)
  - DEEP VEIN THROMBOSIS [None]
